FAERS Safety Report 9606122 (Version 1)
Quarter: 2013Q4

REPORT INFORMATION
  Report Type: Spontaneous
  Country: US (occurrence: US)
  Receive Date: 20131008
  Receipt Date: 20131008
  Transmission Date: 20140711
  Serious: No
  Sender: FDA-Public Use
  Company Number: US-AMGEN-USASP2013043418

PATIENT
  Age: 79 Year
  Sex: Female

DRUGS (4)
  1. PROLIA [Suspect]
     Indication: OSTEOPOROSIS
     Dosage: UNK
     Dates: start: 20130529
  2. METFORMIN [Concomitant]
     Dosage: UNK
  3. LOSARTAN [Concomitant]
     Dosage: UNK
  4. ZOCOR [Concomitant]
     Dosage: UNK

REACTIONS (2)
  - Hypersomnia [Unknown]
  - Back pain [Unknown]
